FAERS Safety Report 5630312-5 (Version None)
Quarter: 2008Q1

REPORT INFORMATION
  Report Type: 
  Country: None (occurrence: None)
  Receive Date: 20080213
  Receipt Date: 20080201
  Transmission Date: 20080703
  Serious: Yes (Death, Hospitalization)
  Sender: FDA-Public Use
  Company Number: 2007US001136

PATIENT
  Age: 49 Year
  Sex: Male

DRUGS (16)
  1. PROGRAF [Suspect]
     Indication: PROPHYLAXIS AGAINST TRANSPLANT REJECTION
     Dosage: 2 MG, BID, ORAL
     Route: 048
     Dates: start: 20070321
  2. MYCOPHENOLATE MOFETIL [Suspect]
     Indication: PROPHYLAXIS AGAINST TRANSPLANT REJECTION
     Dosage: 1000 MG, BID, ORAL
     Route: 048
     Dates: start: 20070321
  3. SIROLIMUS(SIROLIMUS) [Suspect]
     Indication: PROPHYLAXIS AGAINST TRANSPLANT REJECTION
     Dosage: 3 MG, ORAL
     Route: 048
     Dates: start: 20070409, end: 20070418
  4. PREDNISONE TAB [Suspect]
     Indication: PROPHYLAXIS AGAINST TRANSPLANT REJECTION
     Dosage: 15 MG, ORAL
     Route: 048
     Dates: start: 20070321
  5. NYSTATIN [Concomitant]
  6. VALCYTE [Concomitant]
  7. ACTIGALL [Concomitant]
  8. BACTRIM DS [Concomitant]
  9. MAGNESIUM OXIDE (MAGNESIUM OXIDE) [Concomitant]
  10. PROTONIX [Concomitant]
  11. HYDROMORPHONE HCL [Concomitant]
  12. ADVAIR DISKUS 100/50 [Concomitant]
  13. FLUCONAZOLE [Concomitant]
  14. LANTUS [Concomitant]
  15. NOVOLOG [Concomitant]
  16. COLACE (DOCUSATE SODIUM) [Concomitant]

REACTIONS (3)
  - DISEASE RECURRENCE [None]
  - GENERAL PHYSICAL HEALTH DETERIORATION [None]
  - HEPATITIS C [None]
